FAERS Safety Report 15606701 (Version 3)
Quarter: 2019Q1

REPORT INFORMATION
  Report Type: Report from Study
  Country: US (occurrence: US)
  Receive Date: 20181112
  Receipt Date: 20190131
  Transmission Date: 20190417
  Serious: Yes (Hospitalization, Other)
  Sender: FDA-Public Use
  Company Number: US-GILEAD-2018-0373112

PATIENT
  Age: 56 Year
  Sex: Female

DRUGS (2)
  1. AMBRISENTAN [Suspect]
     Active Substance: AMBRISENTAN
     Indication: PULMONARY HYPERTENSION
     Dosage: 10 MG, QD
     Route: 065
     Dates: start: 20161223
  2. UPTRAVI [Suspect]
     Active Substance: SELEXIPAG
     Indication: PULMONARY HYPERTENSION
     Dosage: 0.4 MG, BID
     Route: 065
     Dates: start: 20170201

REACTIONS (5)
  - Rash [Unknown]
  - Spinal fracture [Not Recovered/Not Resolved]
  - Osteomyelitis fungal [Not Recovered/Not Resolved]
  - Spinal cord infection [Not Recovered/Not Resolved]
  - Lip swelling [Unknown]

NARRATIVE: CASE EVENT DATE: 201810
